FAERS Safety Report 5206969-X (Version None)
Quarter: 2007Q1

REPORT INFORMATION
  Report Type: 
  Country: None (occurrence: None)
  Receive Date: 20070105
  Receipt Date: 20070105
  Transmission Date: 20070707
  Serious: Yes (Hospitalization)
  Sender: FDA-Public Use
  Company Number: None

PATIENT
  Age: 51 Year
  Sex: Female
  Weight: 90.6 kg

DRUGS (1)
  1. DOBUTAMINE HCL [Suspect]
     Indication: CARDIAC STRESS TEST
     Dosage: ONCE

REACTIONS (4)
  - GALLBLADDER DISORDER [None]
  - HYPOTENSION [None]
  - OESOPHAGEAL DISORDER [None]
  - SYNCOPE VASOVAGAL [None]
